FAERS Safety Report 8838844 (Version 1)
Quarter: 2012Q4

REPORT INFORMATION
  Report Type: Spontaneous
  Country: US (occurrence: None)
  Receive Date: 20121011
  Receipt Date: 20121011
  Transmission Date: 20130627
  Serious: Yes (Other)
  Sender: FDA-Public Use
  Company Number: None

PATIENT
  Sex: Female
  Weight: 65.9 kg

DRUGS (1)
  1. CARBOPLATIN [Suspect]
     Indication: OVARIAN CARCINOMA
     Dosage: 430 mg once IV Drip
     Route: 041
     Dates: start: 20120906, end: 20120906

REACTIONS (3)
  - Feeling hot [None]
  - Flushing [None]
  - Paraesthesia [None]
